FAERS Safety Report 25807064 (Version 1)
Quarter: 2025Q3

REPORT INFORMATION
  Report Type: Spontaneous
  Country: US (occurrence: None)
  Receive Date: 20250915
  Receipt Date: 20250915
  Transmission Date: 20251020
  Serious: Yes (Death, Life-Threatening, Hospitalization)
  Sender: FDA-CTU
  Company Number: None

PATIENT
  Age: 82 Year
  Sex: Male
  Weight: 74.84 kg

DRUGS (9)
  1. KISUNLA [Suspect]
     Active Substance: DONANEMAB-AZBT
     Indication: Cognitive disorder
     Dosage: FREQUENCY : MONTHLY;?
     Route: 042
     Dates: start: 20250102, end: 20250729
  2. LOW DOSE ASPIRIN [Concomitant]
     Active Substance: ASPIRIN
  3. Metoprolol Succinate 200mg/day (AM+PM) [Concomitant]
  4. ROSUVASTATIN [Concomitant]
     Active Substance: ROSUVASTATIN
  5. CIALIS  None for months [Concomitant]
  6. Losartan 25mg DISCONTINUED [Concomitant]
  7. AMLODIPINE 2.5MG recently [Concomitant]
  8. Daily Multivitamins [Concomitant]
  9. B12 [Concomitant]

REACTIONS (11)
  - Infusion related reaction [None]
  - Dizziness [None]
  - Vision blurred [None]
  - Blood pressure decreased [None]
  - Depressed level of consciousness [None]
  - Atrial fibrillation [None]
  - Pericardial effusion [None]
  - Therapy cessation [None]
  - Hypersensitivity [None]
  - Cardiac arrest [None]
  - Circumstance or information capable of leading to medication error [None]

NARRATIVE: CASE EVENT DATE: 20250729
